FAERS Safety Report 8372487-3 (Version None)
Quarter: 2012Q2

REPORT INFORMATION
  Report Type: 
  Country: None (occurrence: None)
  Receive Date: 20120521
  Receipt Date: 20120514
  Transmission Date: 20120825
  Serious: No
  Sender: FDA-Public Use
  Company Number: US-PFIZER INC-2012117215

PATIENT

DRUGS (1)
  1. CAMPTOSAR [Suspect]

REACTIONS (1)
  - MUSCLE SPASMS [None]
